FAERS Safety Report 19307301 (Version 1)
Quarter: 2021Q2

REPORT INFORMATION
  Report Type: Spontaneous
  Country: US (occurrence: US)
  Receive Date: 20210525
  Receipt Date: 20210525
  Transmission Date: 20210717
  Serious: No
  Sender: FDA-Public Use
  Company Number: US-PURDUE PHARMA-USA-2020-0189347

PATIENT
  Sex: Male
  Weight: 86 kg

DRUGS (2)
  1. OXYCONTIN [Suspect]
     Active Substance: OXYCODONE HYDROCHLORIDE
     Indication: PAIN
     Dosage: 20 MG 3 TIMES
     Route: 048
     Dates: start: 2003, end: 2017
  2. FENTANYL. [Suspect]
     Active Substance: FENTANYL
     Indication: PAIN
     Dosage: 150 MCG, UNK
     Route: 048
     Dates: start: 2003, end: 2017

REACTIONS (4)
  - Anxiety [Unknown]
  - Impaired work ability [Unknown]
  - Depression [Unknown]
  - Panic attack [Unknown]
